FAERS Safety Report 9132836 (Version 1)
Quarter: 2013Q1

REPORT INFORMATION
  Report Type: Report from Study
  Country: FR (occurrence: FR)
  Receive Date: 20130301
  Receipt Date: 20130301
  Transmission Date: 20140127
  Serious: Yes (Hospitalization)
  Sender: FDA-Public Use
  Company Number: FR-ROCHE-1195466

PATIENT
  Age: 76 Year
  Sex: Female
  Weight: 75 kg

DRUGS (11)
  1. TOCILIZUMAB [Suspect]
     Indication: RHEUMATOID ARTHRITIS
     Route: 041
     Dates: start: 20101122
  2. TOCILIZUMAB [Suspect]
     Route: 041
     Dates: start: 20101220, end: 20110117
  3. CORTANCYL [Concomitant]
     Route: 065
     Dates: start: 200811
  4. CORTANCYL [Concomitant]
     Route: 065
     Dates: start: 20110117
  5. CORTANCYL [Concomitant]
     Route: 065
     Dates: start: 20110723
  6. CORTANCYL [Concomitant]
     Route: 065
     Dates: start: 20120703
  7. METHOTREXATE [Concomitant]
     Route: 065
  8. METHOTREXATE [Concomitant]
     Route: 065
     Dates: start: 20110117
  9. METHOTREXATE [Concomitant]
     Route: 065
     Dates: start: 20110719
  10. METHOTREXATE [Concomitant]
     Route: 065
     Dates: start: 20111123
  11. METHOTREXATE [Concomitant]
     Route: 065
     Dates: start: 20120703

REACTIONS (2)
  - Aortic bruit [Recovered/Resolved]
  - Bursitis [Recovered/Resolved]
